FAERS Safety Report 9253288 (Version 2)
Quarter: 2013Q2

REPORT INFORMATION
  Report Type: Spontaneous
  Country: US (occurrence: US)
  Receive Date: 20130424
  Receipt Date: 20130516
  Transmission Date: 20140414
  Serious: Yes (Death, Life-Threatening, Hospitalization, Disabling, Other)
  Sender: FDA-Public Use
  Company Number: US-009507513-1304USA013187

PATIENT
  Age: 75 Year
  Sex: Female
  Weight: 70.75 kg

DRUGS (9)
  1. JANUVIA [Suspect]
     Indication: DIABETES MELLITUS
     Dosage: 100 MG
     Route: 048
     Dates: start: 201204, end: 20130305
  2. ATENOLOL (+) CHLORTHALIDONE [Concomitant]
     Indication: HYPERTENSION
     Dosage: UNK
     Route: 048
     Dates: start: 201110
  3. ASPIRIN [Concomitant]
     Indication: DIABETES MELLITUS
     Dosage: UNK
     Route: 048
     Dates: start: 201004
  4. CRESTOR [Concomitant]
     Indication: LIPIDS INCREASED
     Dosage: UNK
     Route: 048
     Dates: start: 201004
  5. FENOFIBRATE [Concomitant]
     Indication: LIPIDS INCREASED
     Dosage: UNK
     Route: 048
     Dates: start: 201102
  6. LANTUS [Concomitant]
     Indication: DIABETES MELLITUS
     Dosage: UNK
     Dates: start: 201211
  7. LOSARTAN POTASSIUM TABLETS [Concomitant]
     Dosage: UNK
     Dates: start: 201212
  8. OMEPRAZOLE [Concomitant]
     Dosage: UNK
     Dates: start: 201004
  9. PIOGLITAZONE HYDROCHLORIDE [Concomitant]
     Dosage: UNK
     Dates: start: 201303

REACTIONS (4)
  - Septic shock [Fatal]
  - Pancreatitis [Fatal]
  - Intestinal perforation [Fatal]
  - Nausea [Not Recovered/Not Resolved]
